FAERS Safety Report 14254271 (Version 4)
Quarter: 2018Q1

REPORT INFORMATION
  Report Type: Spontaneous
  Country: RO (occurrence: RO)
  Receive Date: 20171206
  Receipt Date: 20180301
  Transmission Date: 20180508
  Serious: Yes (Hospitalization)
  Sender: FDA-Public Use
  Company Number: RO-ROCHE-2033417

PATIENT
  Age: 63 Year
  Sex: Male
  Weight: 70 kg

DRUGS (3)
  1. INSULIN [Concomitant]
     Active Substance: INSULIN NOS
  2. MABTHERA [Suspect]
     Active Substance: RITUXIMAB
     Dosage: MAINTENANCE TREATMENT WITH MABTHERA ON 01 FEBRUARY 2016
     Route: 042
     Dates: start: 201601, end: 20171018
  3. MABTHERA [Suspect]
     Active Substance: RITUXIMAB
     Indication: B-CELL LYMPHOMA
     Route: 042
     Dates: start: 201505

REACTIONS (25)
  - Bronchoplegia [Recovered/Resolved]
  - Hypotension [Unknown]
  - Hyperglycaemia [Unknown]
  - Hypertension [Unknown]
  - Diabetic neuropathy [Unknown]
  - Encephalopathy [Recovering/Resolving]
  - Confusional state [Not Recovered/Not Resolved]
  - Miosis [Unknown]
  - Pyrexia [Unknown]
  - Hepatocellular injury [Unknown]
  - Urinary tract infection [Unknown]
  - Electrolyte imbalance [Recovered/Resolved]
  - Pancytopenia [Unknown]
  - Skin hyperpigmentation [Unknown]
  - Pain [Unknown]
  - Respiratory failure [Recovered/Resolved]
  - Leukopenia [Unknown]
  - Hypotonia [Unknown]
  - Encephalitis [Unknown]
  - Coma scale abnormal [Recovered/Resolved]
  - Neutropenia [Recovered/Resolved]
  - Apathy [Unknown]
  - Cerebral atrophy [Unknown]
  - Cholestasis [Unknown]
  - Oxygen saturation decreased [Unknown]

NARRATIVE: CASE EVENT DATE: 2017
